FAERS Safety Report 5000968-9 (Version None)
Quarter: 2006Q2

REPORT INFORMATION
  Report Type: 
  Country: None (occurrence: None)
  Receive Date: 20060512
  Receipt Date: 20060503
  Transmission Date: 20061013
  Serious: Yes (Other)
  Sender: FDA-Public Use
  Company Number: US-ROCHE-446885

PATIENT
  Age: 16 Year
  Sex: Male
  Weight: 90.7 kg

DRUGS (3)
  1. ACCUTANE [Suspect]
     Indication: ACNE
     Route: 048
     Dates: start: 20060115
  2. ACCUTANE [Suspect]
     Route: 048
  3. ACCUTANE [Suspect]
     Route: 048

REACTIONS (12)
  - AGGRESSION [None]
  - ANGER [None]
  - BLOOD TESTOSTERONE INCREASED [None]
  - CHAPPED LIPS [None]
  - ERYTHEMA [None]
  - HOMICIDAL IDEATION [None]
  - LIP HAEMORRHAGE [None]
  - RASH MACULAR [None]
  - SKIN DISCOLOURATION [None]
  - SKIN STRIAE [None]
  - SUICIDAL IDEATION [None]
  - SWELLING FACE [None]
